FAERS Safety Report 5504502-6 (Version None)
Quarter: 2007Q4

REPORT INFORMATION
  Report Type: 
  Country: None (occurrence: None)
  Receive Date: 20071030
  Receipt Date: 20070823
  Transmission Date: 20080405
  Serious: No
  Sender: FDA-Public Use
  Company Number: 266827

PATIENT
  Age: 76 Year
  Sex: Male

DRUGS (2)
  1. LEVEMIR [Suspect]
     Indication: INSULIN-REQUIRING TYPE II DIABETES MELLITUS
     Dosage: 20 IU, BID, SUBCUTANEOUS 26 IU, BID, SUBCUTANEOUS
     Route: 058
     Dates: start: 20070501, end: 20070801
  2. LEVEMIR [Suspect]
     Indication: INSULIN-REQUIRING TYPE II DIABETES MELLITUS
     Dosage: 20 IU, BID, SUBCUTANEOUS 26 IU, BID, SUBCUTANEOUS
     Route: 058
     Dates: start: 20070801

REACTIONS (1)
  - BLOOD GLUCOSE INCREASED [None]
